FAERS Safety Report 15299813 (Version 1)
Quarter: 2018Q3

REPORT INFORMATION
  Report Type: Spontaneous
  Country: US (occurrence: US)
  Receive Date: 20180808
  Receipt Date: 20180808
  Transmission Date: 20181010
  Serious: No
  Sender: FDA-Public Use
  Company Number: None

PATIENT
  Sex: Female

DRUGS (1)
  1. PHOSLO [Suspect]
     Active Substance: CALCIUM ACETATE

REACTIONS (2)
  - Blood calcium increased [None]
  - Treatment failure [None]
